FAERS Safety Report 9199188 (Version 1)
Quarter: 2013Q1

REPORT INFORMATION
  Report Type: Spontaneous
  Country: US (occurrence: US)
  Receive Date: 20130329
  Receipt Date: 20130329
  Transmission Date: 20140127
  Serious: No
  Sender: FDA-Public Use
  Company Number: US-009507513-1303USA013206

PATIENT
  Age: 26 Year
  Sex: Female

DRUGS (2)
  1. SAPHRIS [Suspect]
     Dosage: 10 MG, UNK
     Route: 060
  2. COGENTIN [Concomitant]
     Dosage: 1 MG, BID

REACTIONS (1)
  - Dystonia [Unknown]
